FAERS Safety Report 18112098 (Version 1)
Quarter: 2020Q3

REPORT INFORMATION
  Report Type: Spontaneous
  Country: SE (occurrence: SE)
  Receive Date: 20200805
  Receipt Date: 20200805
  Transmission Date: 20201103
  Serious: Yes (Other)
  Sender: FDA-Public Use
  Company Number: ALC2020SE006000

PATIENT

DRUGS (2)
  1. TROPICAMIDE. [Suspect]
     Active Substance: TROPICAMIDE
     Indication: MACULAR OEDEMA
     Dosage: UNK
     Route: 065
     Dates: start: 20190724
  2. LOSARTAN. [Concomitant]
     Active Substance: LOSARTAN
     Indication: PRODUCT USED FOR UNKNOWN INDICATION
     Route: 065

REACTIONS (3)
  - Hallucination [Recovering/Resolving]
  - Vision blurred [Recovering/Resolving]
  - Myopathy [Recovering/Resolving]

NARRATIVE: CASE EVENT DATE: 2019
